FAERS Safety Report 21536073 (Version 1)
Quarter: 2022Q4

REPORT INFORMATION
  Report Type: Spontaneous
  Country: US (occurrence: US)
  Receive Date: 20221101
  Receipt Date: 20221101
  Transmission Date: 20230112
  Serious: Yes (Death, Other)
  Sender: FDA-Public Use
  Company Number: US-SA-SAC20221101000926

PATIENT
  Age: 61 Year

DRUGS (1)
  1. ZANTAC [Suspect]
     Active Substance: RANITIDINE HYDROCHLORIDE
     Indication: Dyspepsia
     Dosage: 75 MG FREQUENCY-OTHER
     Dates: start: 199601, end: 201912

REACTIONS (2)
  - Gastrointestinal disorder [Unknown]
  - Bladder cancer stage III [Fatal]

NARRATIVE: CASE EVENT DATE: 20050101
